FAERS Safety Report 8473931 (Version 2)
Quarter: 2013Q2

REPORT INFORMATION
  Report Type: Report from Study
  Country: DE (occurrence: DE)
  Receive Date: 20120323
  Receipt Date: 20130429
  Transmission Date: 20140414
  Serious: Yes (Death, Hospitalization)
  Sender: FDA-Public Use
  Company Number: DE-PFIZER INC-2011279560

PATIENT
  Age: 71 Year
  Sex: Female

DRUGS (6)
  1. CLINDAMYCIN HCL [Suspect]
     Indication: GINGIVITIS
     Dosage: 150 MG, UNK
     Route: 048
     Dates: start: 20101214, end: 20101219
  2. BLINDED THERAPY [Suspect]
     Indication: TYPE 2 DIABETES MELLITUS
     Dosage: UNK
     Dates: start: 20101027, end: 20110111
  3. ACETYLSALICYLIC ACID [Concomitant]
     Dosage: UNK
     Dates: start: 20101216, end: 20101216
  4. ACETYLSALICYLIC ACID [Concomitant]
     Dosage: UNK
     Dates: start: 20101226, end: 20101226
  5. ANGIOTENSINAMIDE [Concomitant]
     Dosage: UNK
     Dates: start: 20101026, end: 20101026
  6. ALDOSTERONE [Concomitant]
     Dosage: UNK
     Dates: start: 20101026, end: 20101026

REACTIONS (3)
  - Intestinal infarction [Fatal]
  - Multi-organ failure [Fatal]
  - Hypersensitivity [Unknown]
